FAERS Safety Report 9283595 (Version 3)
Quarter: 2013Q4

REPORT INFORMATION
  Report Type: Spontaneous
  Country: US (occurrence: US)
  Receive Date: 20130510
  Receipt Date: 20131113
  Transmission Date: 20140711
  Serious: Yes (Death, Hospitalization, Other)
  Sender: FDA-Public Use
  Company Number: US-B.I. PHARMACEUTICALS,INC./RIDGEFIELD-2013-BI-13041BP

PATIENT
  Age: 77 Year
  Sex: Male
  Weight: 68.04 kg

DRUGS (11)
  1. PRADAXA [Suspect]
     Indication: ATRIAL FIBRILLATION
     Dosage: 300 MG
     Route: 048
     Dates: start: 20111011, end: 20120318
  2. ACETAMINOPHEN [Concomitant]
     Route: 048
  3. AMIODARONE [Concomitant]
     Dosage: 400 MG
     Route: 048
  4. ASPIRIN [Concomitant]
     Dosage: 81 MG
     Route: 048
  5. LIPITOR [Concomitant]
     Dosage: 20 MG
     Route: 048
  6. FERROUS SULFATE [Concomitant]
     Dosage: 325 MG
     Route: 048
  7. ATIVAN [Concomitant]
     Route: 048
  8. MULTIVITAMIN [Concomitant]
     Route: 048
  9. PRILOSEC [Concomitant]
     Dosage: 20 MG
     Route: 048
  10. FLOMAX [Concomitant]
     Dosage: 0.4 MG
     Route: 048
  11. SPIRIVA [Concomitant]
     Dosage: 18 MCG
     Route: 055

REACTIONS (10)
  - Shock haemorrhagic [Fatal]
  - Pelvic haemorrhage [Fatal]
  - Intestinal ischaemia [Fatal]
  - Rectal haemorrhage [Unknown]
  - Coagulopathy [Unknown]
  - Leukocytosis [Unknown]
  - Liver disorder [Unknown]
  - Hypovolaemic shock [Unknown]
  - Acute respiratory failure [Unknown]
  - Thrombocytopenia [Unknown]
